FAERS Safety Report 6099766-7 (Version None)
Quarter: 2009Q1

REPORT INFORMATION
  Report Type: 
  Country: None (occurrence: None)
  Receive Date: 20090303
  Receipt Date: 20090217
  Transmission Date: 20090719
  Serious: Yes (Other)
  Sender: FDA-Public Use
  Company Number: PHHY2009BR05657

PATIENT
  Age: 63 Year
  Sex: Female

DRUGS (5)
  1. DIOVAN HCT [Suspect]
     Indication: HYPERTENSION
     Dosage: 80/12.5
     Dates: start: 19990101
  2. DIOVAN HCT [Suspect]
     Dosage: 160/12.5, BID
  3. ISOSORBIDE MONONITRATE [Concomitant]
     Dosage: 20 MG, QD
     Route: 048
     Dates: start: 20050101
  4. VASTAREL ^BIOPHARMA^ [Concomitant]
     Dosage: 20 MG, QD
     Route: 048
     Dates: start: 20050101
  5. ANGIPRESS [Concomitant]
     Indication: HEART RATE ABNORMAL
     Dosage: 25 MG, QD
     Route: 048

REACTIONS (5)
  - BLOOD PRESSURE DECREASED [None]
  - BLOOD PRESSURE INCREASED [None]
  - DIZZINESS [None]
  - HEPATIC STEATOSIS [None]
  - THYROID DISORDER [None]
